FAERS Safety Report 19264117 (Version 1)
Quarter: 2021Q2

REPORT INFORMATION
  Report Type: Spontaneous
  Country: US (occurrence: US)
  Receive Date: 20210515
  Receipt Date: 20210515
  Transmission Date: 20210717
  Serious: No
  Sender: FDA-Public Use
  Company Number: None

PATIENT
  Sex: Female

DRUGS (2)
  1. HUMIRA [Suspect]
     Active Substance: ADALIMUMAB
     Indication: PSORIASIS
     Dosage: OTHER DOSE:SEE EVENT;OTHER FREQUENCY:SEE EVENT;?
     Route: 058
     Dates: start: 20210428
  2. HUMIRA [Suspect]
     Active Substance: ADALIMUMAB
     Indication: PSORIATIC ARTHROPATHY
     Dosage: OTHER DOSE:SEE EVENT;OTHER FREQUENCY:SEE EVENT;?
     Route: 058
     Dates: start: 20210428

REACTIONS (2)
  - Post procedural complication [None]
  - Hypoaesthesia [None]
